FAERS Safety Report 8891109 (Version 1)
Quarter: 2012Q4

REPORT INFORMATION
  Report Type: Report from Study
  Country: CA (occurrence: CA)
  Receive Date: 20121107
  Receipt Date: 20121107
  Transmission Date: 20130627
  Serious: Yes (Other)
  Sender: FDA-Public Use
  Company Number: CA-JNJFOC-20121016691

PATIENT
  Sex: Male
  Weight: 102 kg

DRUGS (7)
  1. REMICADE [Suspect]
     Indication: ANKYLOSING SPONDYLITIS
     Route: 042
     Dates: start: 20110627
  2. ARTHROTEC [Concomitant]
     Route: 065
  3. TYLENOL [Concomitant]
     Route: 065
  4. ACULAR [Concomitant]
     Route: 047
  5. PRED FORTE [Concomitant]
     Route: 047
  6. MSM [Concomitant]
     Route: 065
  7. CHONDROITIN [Concomitant]
     Route: 065

REACTIONS (1)
  - Cataract [Recovered/Resolved]
